FAERS Safety Report 10197668 (Version 1)
Quarter: 2014Q2

REPORT INFORMATION
  Report Type: Spontaneous
  Country: US (occurrence: US)
  Receive Date: 20140527
  Receipt Date: 20140527
  Transmission Date: 20141212
  Serious: No
  Sender: FDA-Public Use
  Company Number: US-NOVEN-14US008986

PATIENT
  Age: 47 Year
  Sex: Female
  Weight: 87.08 kg

DRUGS (4)
  1. MINIVELLE [Suspect]
     Indication: HOT FLUSH
     Dosage: 0.1 MG/DAY, TWICE WEEKLY
     Route: 062
     Dates: start: 20131105, end: 20140122
  2. MINIVELLE [Suspect]
     Indication: NIGHT SWEATS
  3. MINIVELLE [Suspect]
     Indication: INSOMNIA
  4. MINIVELLE [Suspect]
     Indication: WEIGHT INCREASED

REACTIONS (2)
  - Application site rash [Recovering/Resolving]
  - Application site burn [Recovering/Resolving]
